FAERS Safety Report 7068104-5 (Version None)
Quarter: 2010Q4

REPORT INFORMATION
  Report Type: 
  Country: None (occurrence: None)
  Receive Date: 20101028
  Receipt Date: 20101015
  Transmission Date: 20110411
  Serious: Yes (Other)
  Sender: FDA-Public Use
  Company Number: PHEH2008US06597

PATIENT
  Sex: Female

DRUGS (33)
  1. ZOMETA [Suspect]
     Indication: OSTEOPOROSIS PROPHYLAXIS
     Dosage: UNK
     Dates: start: 20060101, end: 20060801
  2. FOSAMAX [Suspect]
     Dosage: UNK
     Dates: start: 20031201, end: 20050901
  3. OXYCODONE HCL [Concomitant]
     Dosage: 20 MG, UNK
  4. OXYCODONE HCL [Concomitant]
     Dosage: 10 MG, UNK
  5. OXYCODONE HCL [Concomitant]
     Dosage: 40 MG, UNK
  6. OXYCODONE AND ACETAMINOPHEN [Concomitant]
     Dosage: 5-325MG
  7. HYDROCODONE BITARTRATE AND ACETAMINOPHEN [Concomitant]
     Dosage: 5-500MG
  8. HYDROCODONE BITARTRATE AND ACETAMINOPHEN [Concomitant]
     Dosage: 7.5-750MG
  9. AMOXICILLIN [Concomitant]
     Dosage: 500 MG, UNK
  10. CITALOPRAM HYDROBROMIDE [Concomitant]
     Dosage: 20 MG, UNK
  11. CYCLOBENZAPRINE [Concomitant]
     Dosage: 10 MG, UNK
  12. LORAZEPAM [Concomitant]
     Dosage: 1 MG, UNK
  13. LORAZEPAM [Concomitant]
     Dosage: 0.5 MG, UNK
  14. NAPROXEN [Concomitant]
     Dosage: 500 MG, UNK
  15. NAPROXEN SODIUM [Concomitant]
     Dosage: 550 MG, UNK
  16. IBUPROFEN [Concomitant]
     Dosage: 800 MG, UNK
  17. DIAZEPAM [Concomitant]
     Dosage: 5 MG, UNK
  18. TAMOXIFEN CITRATE [Concomitant]
     Dosage: 10 MG, UNK
  19. CEPHALEXIN [Concomitant]
     Dosage: 500 MG, UNK
  20. LEVAQUIN [Concomitant]
     Dosage: 500 MG, UNK
  21. AMBIEN [Concomitant]
     Dosage: 5 MG, UNK
  22. OCUFLOX [Concomitant]
     Dosage: 0.3 %, UNK
  23. MEGESTROL ACETATE [Concomitant]
     Dosage: 40 MG, UNK
  24. EFFEXOR XR [Concomitant]
     Dosage: 37.5 MG, UNK
  25. PHENERGAN ^AVENTIS PHARMA^ [Concomitant]
     Dosage: 25 MG, UNK
  26. METHYLPREDNISOLONE [Concomitant]
     Dosage: 4 MG, UNK
  27. CHLORHEXIDINE GLUCONATE [Concomitant]
     Dosage: 0.12 %, UNK
  28. PENICILLIN VK [Concomitant]
     Dosage: 500 MG, UNK
  29. AVELOX [Concomitant]
  30. ATIVAN [Concomitant]
  31. OXYCONTIN [Concomitant]
  32. VICODIN [Concomitant]
  33. HERCEPTIN [Concomitant]

REACTIONS (20)
  - ANXIETY [None]
  - APHAKIA [None]
  - ATELECTASIS [None]
  - DEBRIDEMENT [None]
  - DECREASED INTEREST [None]
  - DRUG ABUSE [None]
  - FORAMEN MAGNUM STENOSIS [None]
  - HIP SURGERY [None]
  - INJURY [None]
  - INTERVERTEBRAL DISC PROTRUSION [None]
  - METASTASES TO BONE [None]
  - METASTASES TO LYMPH NODES [None]
  - METASTASES TO SKIN [None]
  - OSTEONECROSIS OF JAW [None]
  - PAIN [None]
  - PARAESTHESIA ORAL [None]
  - SALPINGO-OOPHORECTOMY [None]
  - SINUSITIS [None]
  - SPONDYLOLYSIS [None]
  - TOOTH EXTRACTION [None]
